FAERS Safety Report 25073774 (Version 2)
Quarter: 2025Q1

REPORT INFORMATION
  Report Type: Report from Study
  Country: US (occurrence: US)
  Receive Date: 20250313
  Receipt Date: 20250325
  Transmission Date: 20250408
  Serious: Yes (Death, Life-Threatening, Other)
  Sender: AUROBINDO
  Company Number: US-MLMSERVICE-20250221-PI413434-00218-3

PATIENT
  Age: 61 Year
  Sex: Male

DRUGS (57)
  1. METHOTREXATE [Suspect]
     Active Substance: METHOTREXATE
     Indication: Psoriatic arthropathy
     Route: 065
  2. LEFLUNOMIDE [Suspect]
     Active Substance: LEFLUNOMIDE
     Indication: Psoriatic arthropathy
     Route: 065
  3. MYCOPHENOLIC ACID [Suspect]
     Active Substance: MYCOPHENOLIC ACID
     Indication: Psoriatic arthropathy
     Route: 065
  4. METHYLPREDNISOLONE [Suspect]
     Active Substance: METHYLPREDNISOLONE
     Indication: Psoriatic arthropathy
     Route: 065
  5. CYCLOPHOSPHAMIDE [Suspect]
     Active Substance: CYCLOPHOSPHAMIDE
     Indication: Epstein-Barr virus associated lymphoma
     Route: 065
     Dates: start: 2023, end: 2023
  6. CYCLOPHOSPHAMIDE [Suspect]
     Active Substance: CYCLOPHOSPHAMIDE
     Indication: Cutaneous B-cell lymphoma
  7. CYCLOPHOSPHAMIDE [Suspect]
     Active Substance: CYCLOPHOSPHAMIDE
     Indication: Marginal zone lymphoma
  8. CYCLOPHOSPHAMIDE [Suspect]
     Active Substance: CYCLOPHOSPHAMIDE
     Indication: Lymphoma transformation
  9. CYCLOPHOSPHAMIDE [Suspect]
     Active Substance: CYCLOPHOSPHAMIDE
     Indication: Plasmablastic lymphoma
  10. CYCLOPHOSPHAMIDE [Suspect]
     Active Substance: CYCLOPHOSPHAMIDE
     Indication: Clonal haematopoiesis
  11. CYCLOPHOSPHAMIDE [Suspect]
     Active Substance: CYCLOPHOSPHAMIDE
     Indication: Metastases to lymph nodes
  12. CYCLOPHOSPHAMIDE [Suspect]
     Active Substance: CYCLOPHOSPHAMIDE
     Indication: Upper gastrointestinal haemorrhage
  13. CYCLOPHOSPHAMIDE [Suspect]
     Active Substance: CYCLOPHOSPHAMIDE
     Indication: Gastric ulcer haemorrhage
  14. CYCLOPHOSPHAMIDE [Suspect]
     Active Substance: CYCLOPHOSPHAMIDE
     Indication: Anaemia macrocytic
  15. BORTEZOMIB [Suspect]
     Active Substance: BORTEZOMIB
     Indication: Epstein-Barr virus associated lymphoma
     Route: 065
     Dates: start: 2023, end: 2023
  16. BORTEZOMIB [Suspect]
     Active Substance: BORTEZOMIB
     Indication: Cutaneous B-cell lymphoma
  17. BORTEZOMIB [Suspect]
     Active Substance: BORTEZOMIB
     Indication: Marginal zone lymphoma
  18. BORTEZOMIB [Suspect]
     Active Substance: BORTEZOMIB
     Indication: Lymphoma transformation
  19. BORTEZOMIB [Suspect]
     Active Substance: BORTEZOMIB
     Indication: Plasmablastic lymphoma
  20. BORTEZOMIB [Suspect]
     Active Substance: BORTEZOMIB
     Indication: Clonal haematopoiesis
  21. BORTEZOMIB [Suspect]
     Active Substance: BORTEZOMIB
     Indication: Metastases to lymph nodes
  22. BORTEZOMIB [Suspect]
     Active Substance: BORTEZOMIB
     Indication: Upper gastrointestinal haemorrhage
  23. BORTEZOMIB [Suspect]
     Active Substance: BORTEZOMIB
     Indication: Gastric ulcer haemorrhage
  24. BORTEZOMIB [Suspect]
     Active Substance: BORTEZOMIB
     Indication: Anaemia macrocytic
  25. SECUKINUMAB [Suspect]
     Active Substance: SECUKINUMAB
     Indication: Psoriatic arthropathy
     Route: 065
  26. SULFASALAZINE [Suspect]
     Active Substance: SULFASALAZINE
     Indication: Psoriatic arthropathy
     Route: 065
  27. ADALIMUMAB [Suspect]
     Active Substance: ADALIMUMAB
     Indication: Psoriatic arthropathy
     Route: 065
  28. ETOPOSIDE PHOSPHATE [Suspect]
     Active Substance: ETOPOSIDE PHOSPHATE
     Indication: Epstein-Barr virus associated lymphoma
     Route: 065
     Dates: start: 2023, end: 2023
  29. ETOPOSIDE PHOSPHATE [Suspect]
     Active Substance: ETOPOSIDE PHOSPHATE
     Indication: Cutaneous B-cell lymphoma
  30. ETOPOSIDE PHOSPHATE [Suspect]
     Active Substance: ETOPOSIDE PHOSPHATE
     Indication: Marginal zone lymphoma
  31. ETOPOSIDE PHOSPHATE [Suspect]
     Active Substance: ETOPOSIDE PHOSPHATE
     Indication: Lymphoma transformation
  32. ETOPOSIDE PHOSPHATE [Suspect]
     Active Substance: ETOPOSIDE PHOSPHATE
     Indication: Plasmablastic lymphoma
  33. ETOPOSIDE PHOSPHATE [Suspect]
     Active Substance: ETOPOSIDE PHOSPHATE
     Indication: Clonal haematopoiesis
  34. ETOPOSIDE PHOSPHATE [Suspect]
     Active Substance: ETOPOSIDE PHOSPHATE
     Indication: Metastases to lymph nodes
  35. ETOPOSIDE PHOSPHATE [Suspect]
     Active Substance: ETOPOSIDE PHOSPHATE
     Indication: Upper gastrointestinal haemorrhage
  36. ETOPOSIDE PHOSPHATE [Suspect]
     Active Substance: ETOPOSIDE PHOSPHATE
     Indication: Gastric ulcer haemorrhage
  37. ETOPOSIDE PHOSPHATE [Suspect]
     Active Substance: ETOPOSIDE PHOSPHATE
     Indication: Anaemia macrocytic
  38. VINCRISTINE SULFATE [Suspect]
     Active Substance: VINCRISTINE SULFATE
     Indication: Epstein-Barr virus associated lymphoma
     Route: 065
     Dates: start: 2023, end: 2023
  39. VINCRISTINE SULFATE [Suspect]
     Active Substance: VINCRISTINE SULFATE
     Indication: Cutaneous B-cell lymphoma
  40. VINCRISTINE SULFATE [Suspect]
     Active Substance: VINCRISTINE SULFATE
     Indication: Marginal zone lymphoma
  41. VINCRISTINE SULFATE [Suspect]
     Active Substance: VINCRISTINE SULFATE
     Indication: Lymphoma transformation
  42. VINCRISTINE SULFATE [Suspect]
     Active Substance: VINCRISTINE SULFATE
     Indication: Plasmablastic lymphoma
  43. VINCRISTINE SULFATE [Suspect]
     Active Substance: VINCRISTINE SULFATE
     Indication: Clonal haematopoiesis
  44. VINCRISTINE SULFATE [Suspect]
     Active Substance: VINCRISTINE SULFATE
     Indication: Metastases to lymph nodes
  45. VINCRISTINE SULFATE [Suspect]
     Active Substance: VINCRISTINE SULFATE
     Indication: Upper gastrointestinal haemorrhage
  46. VINCRISTINE SULFATE [Suspect]
     Active Substance: VINCRISTINE SULFATE
     Indication: Gastric ulcer haemorrhage
  47. VINCRISTINE SULFATE [Suspect]
     Active Substance: VINCRISTINE SULFATE
     Indication: Anaemia macrocytic
  48. DOXORUBICIN [Suspect]
     Active Substance: DOXORUBICIN
     Indication: Epstein-Barr virus associated lymphoma
     Route: 065
     Dates: start: 2023, end: 2023
  49. DOXORUBICIN [Suspect]
     Active Substance: DOXORUBICIN
     Indication: Cutaneous B-cell lymphoma
  50. DOXORUBICIN [Suspect]
     Active Substance: DOXORUBICIN
     Indication: Marginal zone lymphoma
  51. DOXORUBICIN [Suspect]
     Active Substance: DOXORUBICIN
     Indication: Lymphoma transformation
  52. DOXORUBICIN [Suspect]
     Active Substance: DOXORUBICIN
     Indication: Plasmablastic lymphoma
  53. DOXORUBICIN [Suspect]
     Active Substance: DOXORUBICIN
     Indication: Clonal haematopoiesis
  54. DOXORUBICIN [Suspect]
     Active Substance: DOXORUBICIN
     Indication: Metastases to lymph nodes
  55. DOXORUBICIN [Suspect]
     Active Substance: DOXORUBICIN
     Indication: Upper gastrointestinal haemorrhage
  56. DOXORUBICIN [Suspect]
     Active Substance: DOXORUBICIN
     Indication: Gastric ulcer haemorrhage
  57. DOXORUBICIN [Suspect]
     Active Substance: DOXORUBICIN
     Indication: Anaemia macrocytic

REACTIONS (11)
  - Epstein-Barr virus associated lymphoma [Fatal]
  - Cutaneous B-cell lymphoma [Fatal]
  - Marginal zone lymphoma [Fatal]
  - Lymphoma transformation [Fatal]
  - Plasmablastic lymphoma [Fatal]
  - Upper gastrointestinal haemorrhage [Fatal]
  - Gastric ulcer haemorrhage [Fatal]
  - Metastases to lymph nodes [Fatal]
  - Anaemia macrocytic [Fatal]
  - Clonal haematopoiesis [Fatal]
  - Toxicity to various agents [Unknown]

NARRATIVE: CASE EVENT DATE: 20210101
